FAERS Safety Report 5563440-3 (Version None)
Quarter: 2007Q4

REPORT INFORMATION
  Report Type: 
  Country: None (occurrence: None)
  Receive Date: 20071213
  Receipt Date: 20071213
  Transmission Date: 20080405
  Serious: Yes (Life-Threatening, Hospitalization)
  Sender: FDA-Public Use
  Company Number: None

PATIENT
  Age: 58 Year
  Sex: Male

DRUGS (2)
  1. HALOPERIDOL [Suspect]
     Indication: AGITATION
     Dosage: 5MG PRN IV
     Route: 042
     Dates: start: 20071012, end: 20071019
  2. HALOPERIDOL [Suspect]
     Indication: SURGERY
     Dosage: 5MG PRN IV
     Route: 042
     Dates: start: 20071012, end: 20071019

REACTIONS (2)
  - ELECTROCARDIOGRAM QT PROLONGED [None]
  - VENTRICULAR TACHYCARDIA [None]
